FAERS Safety Report 8299961-2 (Version None)
Quarter: 2012Q2

REPORT INFORMATION
  Report Type: 
  Country: None (occurrence: None)
  Receive Date: 20120420
  Receipt Date: 20120411
  Transmission Date: 20120825
  Serious: No
  Sender: FDA-Public Use
  Company Number: US-BIOGENIDEC-2012BI012914

PATIENT
  Age: 60 Year
  Sex: Female

DRUGS (1)
  1. TYSABRI [Suspect]
     Indication: MULTIPLE SCLEROSIS
     Route: 042
     Dates: start: 20110808, end: 20120217

REACTIONS (5)
  - DIZZINESS [None]
  - BLOOD PRESSURE DECREASED [None]
  - FALL [None]
  - CONTUSION [None]
  - MULTIPLE SCLEROSIS RELAPSE [None]
